FAERS Safety Report 9312116 (Version 1)
Quarter: 2013Q2

REPORT INFORMATION
  Report Type: Spontaneous
  Country: GR (occurrence: GR)
  Receive Date: 20130528
  Receipt Date: 20130528
  Transmission Date: 20140414
  Serious: Yes (Other)
  Sender: FDA-Public Use
  Company Number: GR-PFIZER INC-2013158145

PATIENT
  Age: 50 Year
  Sex: Female

DRUGS (1)
  1. SUNITINIB MALATE [Suspect]
     Indication: ANTIANGIOGENIC THERAPY
     Dosage: 50 MG, DAILY 4 WEEKS ON 2 WEEKS OFF

REACTIONS (3)
  - Hemiparesis [Unknown]
  - Aphasia [Unknown]
  - Haematoma [Unknown]
